FAERS Safety Report 23118029 (Version 2)
Quarter: 2023Q4

REPORT INFORMATION
  Report Type: Spontaneous
  Country: US (occurrence: US)
  Receive Date: 20231027
  Receipt Date: 20231201
  Transmission Date: 20240110
  Serious: No
  Sender: FDA-Public Use
  Company Number: US-PFIZER INC-PV202300176110

PATIENT
  Age: 14 Year
  Sex: Male
  Weight: 56.689 kg

DRUGS (2)
  1. LITFULO [Suspect]
     Active Substance: RITLECITINIB TOSYLATE
     Indication: Alopecia
     Dosage: 50 MG, 1X/DAY
     Dates: start: 20230917
  2. NUTRAFOL [Concomitant]
     Indication: Hair growth abnormal
     Dosage: UNK
     Dates: start: 20230906

REACTIONS (1)
  - Drug ineffective [Unknown]

NARRATIVE: CASE EVENT DATE: 20230101
